FAERS Safety Report 9695091 (Version 1)
Quarter: 2013Q4

REPORT INFORMATION
  Report Type: Spontaneous
  Country: GB (occurrence: GB)
  Receive Date: 20131119
  Receipt Date: 20131119
  Transmission Date: 20140711
  Serious: Yes (Other)
  Sender: FDA-Public Use
  Company Number: PHFR2013GB006469

PATIENT
  Sex: 0

DRUGS (2)
  1. EVEROLIMUS [Suspect]
  2. EXEMESTANE [Concomitant]

REACTIONS (1)
  - Pulmonary fibrosis [Unknown]
